FAERS Safety Report 6997970-4 (Version None)
Quarter: 2010Q3

REPORT INFORMATION
  Report Type: 
  Country: None (occurrence: None)
  Receive Date: 20100901
  Receipt Date: 20100524
  Transmission Date: 20110219
  Serious: Yes (Other)
  Sender: FDA-Public Use
  Company Number: WAES 1005USA04249

PATIENT
  Sex: Female

DRUGS (1)
  1. MAXALT-MLT [Suspect]
     Indication: MIGRAINE
     Dosage: 10 MG/PO

REACTIONS (1)
  - CEREBROVASCULAR ACCIDENT [None]
